FAERS Safety Report 8496278-8 (Version None)
Quarter: 2012Q3

REPORT INFORMATION
  Report Type: 
  Country: None (occurrence: None)
  Receive Date: 20120709
  Receipt Date: 20120706
  Transmission Date: 20120928
  Serious: No
  Sender: FDA-Public Use
  Company Number: US-PFIZER INC-2012162641

PATIENT
  Sex: Male
  Weight: 81.633 kg

DRUGS (2)
  1. CHANTIX [Suspect]
     Dosage: 1 MG, 2X/DAY
     Route: 048
     Dates: start: 20120101
  2. CHANTIX [Suspect]
     Indication: SMOKING CESSATION THERAPY
     Dosage: 0.5 MG, 1X/DAY
     Route: 048
     Dates: start: 20120622, end: 20120101

REACTIONS (7)
  - SLUGGISHNESS [None]
  - DIZZINESS [None]
  - NAUSEA [None]
  - BURNING SENSATION [None]
  - FATIGUE [None]
  - PAIN [None]
  - FEELING ABNORMAL [None]
